FAERS Safety Report 24054448 (Version 1)
Quarter: 2024Q3

REPORT INFORMATION
  Report Type: Spontaneous
  Country: US (occurrence: US)
  Receive Date: 20240705
  Receipt Date: 20240705
  Transmission Date: 20241016
  Serious: Yes (Death, Hospitalization, Other)
  Sender: RANBAXY
  Company Number: US-SUN PHARMACEUTICAL INDUSTRIES LTD-2024R1-455162

PATIENT
  Age: 60 Year
  Sex: Female

DRUGS (4)
  1. CEFTAZIDIME [Suspect]
     Active Substance: CEFTAZIDIME
     Indication: Bacterial infection
     Dosage: CAZ-AVI AS A 2.5-G INTRAVENOUS INFUSION OVER 2 HOURS EVERY 8 HOURS
     Route: 065
  2. MINOCYCLINE [Suspect]
     Active Substance: MINOCYCLINE HYDROCHLORIDE
     Indication: Bacterial infection
     Route: 065
  3. AZTREONAM [Suspect]
     Active Substance: AZTREONAM
     Indication: Bacterial infection
     Dosage: 2 GRAM, EVERY 8 HOURS
     Route: 042
  4. AVIBACTAM [Suspect]
     Active Substance: AVIBACTAM
     Indication: Bacterial infection
     Dosage: CAZ-AVI AS A 2.5-G INTRAVENOUS INFUSION OVER 2 HOURS EVERY 8 HOURS
     Route: 065

REACTIONS (4)
  - Therapy non-responder [Unknown]
  - Acute respiratory distress syndrome [Fatal]
  - Shock [Fatal]
  - Condition aggravated [Unknown]
